FAERS Safety Report 19655173 (Version 1)
Quarter: 2021Q3

REPORT INFORMATION
  Report Type: Spontaneous
  Country: CN (occurrence: CN)
  Receive Date: 20210803
  Receipt Date: 20210803
  Transmission Date: 20211014
  Serious: Yes (Life-Threatening, Hospitalization)
  Sender: FDA-Public Use
  Company Number: CN-BAXTER-2021BAX022898

PATIENT
  Age: 61 Year
  Sex: Female
  Weight: 50.6 kg

DRUGS (12)
  1. ENDOXAN [Suspect]
     Active Substance: CYCLOPHOSPHAMIDE
     Dosage: ROUTE: MICRO?PUMP INJECTION, CYCLOPHOSPHAMIDE + 0.9% SODIUM CHLORIDE (DOSE RE?INTRODUCED)
     Route: 050
  2. 0.9% SODIUM CHLORIDE INJECTION [Suspect]
     Active Substance: SODIUM CHLORIDE
     Dosage: 0.9% SODIUM CHLORIDE 250 ML + TRASTUZUMAB 312 MG
     Route: 041
     Dates: start: 20210613, end: 20210613
  3. AISU [Suspect]
     Active Substance: DOCETAXEL
     Dosage: DOCETAXEL + GLUCOSE (DOSE RE?INTRODUCED)
     Route: 041
  4. HERCEPTIN [Suspect]
     Active Substance: TRASTUZUMAB
     Dosage: TRASTUZUMAB + 0.9% SODIUM CHLORIDE (DOSE RE?INTRODUCED)
     Route: 041
  5. HERCEPTIN [Suspect]
     Active Substance: TRASTUZUMAB
     Indication: IMMUNOSUPPRESSION
     Dosage: TRASTUZUMAB 312 MG + 0.9% SODIUM CHLORIDE 250 ML
     Route: 041
     Dates: start: 20210613, end: 20210613
  6. 0.9% SODIUM CHLORIDE INJECTION [Suspect]
     Active Substance: SODIUM CHLORIDE
     Dosage: ROUTE: MICRO?PUMP INJECTION, 0.9% SODIUM CHLORIDE + CYCLOPHOSPHAMIDE (DOSE RE?INTRODUCED)
     Route: 050
  7. 5% GLUCOSE  INJECTION [Suspect]
     Active Substance: DEXTROSE
     Indication: MEDICATION DILUTION
     Dosage: GLUCOSE 250 ML + DOCETAXEL 112 MG
     Route: 041
     Dates: start: 20210613, end: 20210613
  8. 0.9% SODIUM CHLORIDE INJECTION [Suspect]
     Active Substance: SODIUM CHLORIDE
     Dosage: 0.9% SODIUM CHLORIDE + TRASTUZUMAB (DOSE RE?INTRODUCED)
     Route: 041
  9. ENDOXAN [Suspect]
     Active Substance: CYCLOPHOSPHAMIDE
     Indication: BREAST CANCER FEMALE
     Dosage: ROUTE: MICRO?PUMP INJECTION, CYCLOPHOSPHAMIDE 0.9 G + 0.9% SODIUM CHLORIDE 40 ML
     Route: 050
     Dates: start: 20210613, end: 20210613
  10. 0.9% SODIUM CHLORIDE INJECTION [Suspect]
     Active Substance: SODIUM CHLORIDE
     Indication: MEDICATION DILUTION
     Dosage: ROUTE: MICRO?PUMP INJECTION, 0.9% SODIUM CHLORIDE 40 ML + CYCLOPHOSPHAMIDE 0.9 G
     Route: 050
     Dates: start: 20210613, end: 20210613
  11. 5% GLUCOSE  INJECTION [Suspect]
     Active Substance: DEXTROSE
     Dosage: GLUCOSE + DOCETAXEL (DOSE RE?INTRODUCED)
     Route: 041
  12. AISU [Suspect]
     Active Substance: DOCETAXEL
     Indication: BREAST CANCER FEMALE
     Dosage: DOCETAXEL 112 MG + GLUCOSE 250 ML
     Route: 041
     Dates: start: 20210613, end: 20210613

REACTIONS (2)
  - Rash [Recovering/Resolving]
  - Pruritus [Unknown]

NARRATIVE: CASE EVENT DATE: 20210618
